FAERS Safety Report 25450648 (Version 1)
Quarter: 2025Q2

REPORT INFORMATION
  Report Type: Spontaneous
  Country: US (occurrence: US)
  Receive Date: 20250618
  Receipt Date: 20250618
  Transmission Date: 20250716
  Serious: Yes (Life-Threatening, Hospitalization)
  Sender: STRIDES
  Company Number: None

PATIENT
  Age: 34 Year
  Sex: Female

DRUGS (4)
  1. FLUOXETINE [Interacting]
     Active Substance: FLUOXETINE HYDROCHLORIDE
     Indication: Anxiety
     Route: 065
  2. PROPOFOL [Interacting]
     Active Substance: PROPOFOL
     Indication: Induction and maintenance of anaesthesia
     Route: 042
  3. PROPOFOL [Interacting]
     Active Substance: PROPOFOL
     Route: 042
  4. BUPROPION [Interacting]
     Active Substance: BUPROPION
     Indication: Anxiety
     Route: 065

REACTIONS (2)
  - Serotonin syndrome [Recovered/Resolved]
  - Drug interaction [Recovered/Resolved]
